FAERS Safety Report 20206934 (Version 2)
Quarter: 2022Q1

REPORT INFORMATION
  Report Type: Spontaneous
  Country: DE (occurrence: DE)
  Receive Date: 20211220
  Receipt Date: 20220106
  Transmission Date: 20220423
  Serious: Yes (Hospitalization)
  Sender: FDA-Public Use
  Company Number: None

PATIENT
  Age: 78 Year
  Sex: Male
  Weight: 68 kg

DRUGS (6)
  1. ASPIRIN [Suspect]
     Active Substance: ASPIRIN
     Indication: Product used for unknown indication
     Dosage: 100 MG, 0-1-0-0
     Route: 048
  2. ACYCLOVIR [Suspect]
     Active Substance: ACYCLOVIR
     Indication: Product used for unknown indication
     Dosage: 800 MG DISCONTINUED SINCE 23-MAR-2021
     Route: 048
     Dates: end: 20210323
  3. ATORVASTATIN [Concomitant]
     Active Substance: ATORVASTATIN
     Indication: Product used for unknown indication
     Dosage: 20 MG, 0-0-1-0
     Route: 048
  4. Beclometason/Formoterol [Concomitant]
     Indication: Product used for unknown indication
     Dosage: 100/6 MICROGRAM, 2-0-2-0, METERED DOSE INHALER
     Route: 055
  5. METAMIZOLE [Concomitant]
     Active Substance: METAMIZOLE
     Indication: Product used for unknown indication
     Dosage: 500 MG, 1-1-0-1, DROPS
     Route: 048
  6. PROPRANOLOL [Concomitant]
     Active Substance: PROPRANOLOL HYDROCHLORIDE
     Indication: Product used for unknown indication
     Dosage: 40 MG, 0.5-0-0.5-0
     Route: 048

REACTIONS (5)
  - Nausea [Unknown]
  - Pain [Unknown]
  - Haematuria [Unknown]
  - Renal impairment [Unknown]
  - Pollakiuria [Unknown]
